FAERS Safety Report 11389301 (Version 5)
Quarter: 2016Q3

REPORT INFORMATION
  Report Type: Report from Study
  Country: US (occurrence: US)
  Receive Date: 20150817
  Receipt Date: 20160711
  Transmission Date: 20161109
  Serious: No
  Sender: FDA-Public Use
  Company Number: PHEH2015US009516

PATIENT
  Age: 25 Year
  Sex: Male
  Weight: 89.35 kg

DRUGS (1)
  1. AFINITOR [Suspect]
     Active Substance: EVEROLIMUS
     Indication: ANGIOMYOLIPOMA
     Dosage: 10 MG, QD
     Route: 048
     Dates: start: 20150420

REACTIONS (6)
  - Blood pressure increased [Recovering/Resolving]
  - Dental caries [Recovered/Resolved]
  - T-lymphocyte count decreased [Unknown]
  - Fatigue [Unknown]
  - Dry skin [Recovering/Resolving]
  - Nausea [Unknown]

NARRATIVE: CASE EVENT DATE: 20150430
